FAERS Safety Report 4409741-3 (Version None)
Quarter: 2004Q3

REPORT INFORMATION
  Report Type: 
  Country: None (occurrence: None)
  Receive Date: 20040728
  Receipt Date: 20040723
  Transmission Date: 20050211
  Serious: Yes (Death)
  Sender: FDA-Public Use
  Company Number: 200417302GDDC

PATIENT
  Age: 43 Year
  Sex: Female

DRUGS (12)
  1. FUROSEMIDE [Suspect]
     Dosage: DOSE: UNK
  2. SPIRONOLACTONE [Concomitant]
     Dosage: DOSE: UNK
  3. BECLOMETHASONE DIPROPIONATE [Concomitant]
     Dosage: DOSE: UNK
     Route: 055
  4. CEFUROXIME [Concomitant]
     Dosage: DOSE: UNK
  5. DESMOPRESSIN [Concomitant]
     Dosage: DOSE: UNK
  6. DIPHTHERIA AND TETANUS VACCINE [Concomitant]
     Dosage: DOSE: UNK
  7. HEPATITIS B VACCINE [Concomitant]
     Dosage: DOSE: UNK
  8. OMEPRAZOLE [Concomitant]
     Dosage: DOSE: UNK
  9. PHYTONADIONE [Concomitant]
     Dosage: DOSE: UNK
  10. PNEUMOVAX 23 [Concomitant]
     Dosage: DOSE: UNK
  11. PROTEIN SUPPLEMENTS [Concomitant]
     Dosage: DOSE: UNK
  12. ALBUTEROL SULFATE [Concomitant]
     Dosage: DOSE: UNK

REACTIONS (1)
  - TOXIC EPIDERMAL NECROLYSIS [None]
